FAERS Safety Report 4937106-4 (Version None)
Quarter: 2006Q1

REPORT INFORMATION
  Report Type: 
  Country: None (occurrence: None)
  Receive Date: 20060302
  Receipt Date: 20060207
  Transmission Date: 20060701
  Serious: No
  Sender: FDA-Public Use
  Company Number: 33654

PATIENT
  Age: 57 Year
  Sex: Male

DRUGS (2)
  1. TRAVATAN [Suspect]
     Indication: OCULAR HYPERTENSION
     Dosage: 1 GTT OU QD OPHT
     Route: 047
     Dates: start: 20051209, end: 20060110
  2. PIAS [Concomitant]

REACTIONS (3)
  - ANGLE CLOSURE GLAUCOMA [None]
  - HALO VISION [None]
  - INTRAOCULAR PRESSURE INCREASED [None]
